FAERS Safety Report 7033642-8 (Version None)
Quarter: 2010Q4

REPORT INFORMATION
  Report Type: 
  Country: None (occurrence: None)
  Receive Date: 20101005
  Receipt Date: 20100920
  Transmission Date: 20110411
  Serious: Yes (Hospitalization)
  Sender: FDA-Public Use
  Company Number: 2010-2720

PATIENT
  Sex: Female

DRUGS (6)
  1. APO-GO PFS (APO-GO) (APOMORPHINE HYDROCHLORIDE) (APOMORPHINE HYDROCHLO [Suspect]
     Indication: PARKINSON'S DISEASE
     Dosage: 11 HOURS/DAY (11 HOURS/DAY), SUBCUTANEOUS
     Route: 058
     Dates: start: 20100413
  2. MIRTAZAPINE [Concomitant]
  3. STALEVO (STALEVO) [Concomitant]
  4. LEV. COMP RET (SINEMET) [Concomitant]
  5. MADOPAR (MADOPAR /00349201/) [Concomitant]
  6. PANTOPRAZOLE SODIUM [Concomitant]

REACTIONS (3)
  - DISEASE PROGRESSION [None]
  - MUSCLE RIGIDITY [None]
  - PARKINSON'S DISEASE [None]
